FAERS Safety Report 7755232-1 (Version None)
Quarter: 2011Q3

REPORT INFORMATION
  Report Type: 
  Country: None (occurrence: None)
  Receive Date: 20110913
  Receipt Date: 20110901
  Transmission Date: 20111222
  Serious: Yes (Other)
  Sender: FDA-Public Use
  Company Number: US-2011-10641

PATIENT
  Age: 9 Year
  Sex: Female

DRUGS (5)
  1. CYCLOSPORINE [Concomitant]
  2. BUSULFEX [Suspect]
     Indication: STEM CELL TRANSPLANT
     Dosage: INTRAVENOUS
     Route: 042
  3. ACYCLOVIR (ACICLOVIR SODIUM) [Concomitant]
  4. CYCLOPHOSPHAMIDE [Suspect]
     Indication: STEM CELL TRANSPLANT
  5. IMMUNE GLOBULIN (HUMAN) [Concomitant]

REACTIONS (6)
  - MENINGOENCEPHALITIS ADENOVIRAL [None]
  - OPTIC PATHWAY INJURY [None]
  - PYRAMIDAL TRACT SYNDROME [None]
  - VISUAL ACUITY REDUCED [None]
  - ACUTE GRAFT VERSUS HOST DISEASE IN INTESTINE [None]
  - ACUTE GRAFT VERSUS HOST DISEASE IN SKIN [None]
